FAERS Safety Report 10401768 (Version 1)
Quarter: 2014Q3

REPORT INFORMATION
  Report Type: Spontaneous
  Country: IL (occurrence: None)
  Receive Date: 20140820
  Receipt Date: 20140820
  Transmission Date: 20150326
  Serious: Yes (Hospitalization)
  Sender: FDA-Public Use
  Company Number: None

PATIENT
  Age: 59 Year
  Sex: Male
  Weight: 84 kg

DRUGS (2)
  1. DAUNORUBICIN [Suspect]
     Active Substance: DAUNORUBICIN
  2. CYTARABINE. [Suspect]
     Active Substance: CYTARABINE

REACTIONS (5)
  - Pyrexia [None]
  - Acinetobacter test positive [None]
  - Septic shock [None]
  - Multi-organ failure [None]
  - Neutropenia [None]

NARRATIVE: CASE EVENT DATE: 20131207
